FAERS Safety Report 10935751 (Version 2)
Quarter: 2015Q2

REPORT INFORMATION
  Report Type: Report from Study
  Country: GB (occurrence: GB)
  Receive Date: 20150320
  Receipt Date: 20150428
  Transmission Date: 20150821
  Serious: Yes (Other)
  Sender: FDA-Public Use
  Company Number: GB-ABBVIE-15K-167-1362029-00

PATIENT
  Sex: Female

DRUGS (1)
  1. HUMIRA [Suspect]
     Active Substance: ADALIMUMAB
     Indication: PRODUCT USED FOR UNKNOWN INDICATION
     Route: 065

REACTIONS (14)
  - Panic reaction [Unknown]
  - Blood count abnormal [Unknown]
  - Fatigue [Unknown]
  - Arthralgia [Unknown]
  - Pallor [Unknown]
  - Feeling abnormal [Unknown]
  - Anxiety [Unknown]
  - Palpitations [Unknown]
  - Neuralgia [Unknown]
  - Cognitive disorder [Unknown]
  - Vision blurred [Unknown]
  - Eye pain [Unknown]
  - Hypoaesthesia [Unknown]
  - Diarrhoea [Unknown]
